FAERS Safety Report 22585730 (Version 1)
Quarter: 2023Q2

REPORT INFORMATION
  Report Type: Spontaneous
  Country: TR (occurrence: TR)
  Receive Date: 20230610
  Receipt Date: 20230610
  Transmission Date: 20230722
  Serious: Yes (Other)
  Sender: FDA-Public Use
  Company Number: TR-KOREA IPSEN Pharma-2023-13595

PATIENT
  Age: 44 Year
  Sex: Male

DRUGS (2)
  1. DYSPORT [Suspect]
     Active Substance: ABOBOTULINUMTOXINA
     Indication: Hyperhidrosis
     Dosage: 1 VIAL
     Route: 050
  2. DYSPORT [Suspect]
     Active Substance: ABOBOTULINUMTOXINA
     Indication: Off label use

REACTIONS (5)
  - Ophthalmoplegia [Unknown]
  - Dysphagia [Unknown]
  - Walking disability [Unknown]
  - Dysphemia [Unknown]
  - Off label use [Unknown]
